FAERS Safety Report 10653627 (Version 2)
Quarter: 2014Q4

REPORT INFORMATION
  Report Type: Report from Study
  Country: US (occurrence: US)
  Receive Date: 20141216
  Receipt Date: 20141228
  Transmission Date: 20150529
  Serious: Yes (Other)
  Sender: FDA-Public Use
  Company Number: US-AMGEN-USASL2014097056

PATIENT
  Age: 47 Year
  Sex: Female
  Weight: 113.38 kg

DRUGS (1)
  1. ENBREL [Suspect]
     Active Substance: ETANERCEPT
     Indication: PSORIASIS
     Dosage: 50 MG, 2 TIMES/WK
     Route: 058
     Dates: start: 201408, end: 201409

REACTIONS (7)
  - Postoperative wound complication [Not Recovered/Not Resolved]
  - Staphylococcal infection [Recovered/Resolved]
  - Incision site ulcer [Not Recovered/Not Resolved]
  - Impaired healing [Unknown]
  - Psoriasis [Not Recovered/Not Resolved]
  - Breast cyst [Recovered/Resolved]
  - Dermal cyst [Recovered/Resolved]

NARRATIVE: CASE EVENT DATE: 201409
